FAERS Safety Report 5641072-6 (Version None)
Quarter: 2008Q1

REPORT INFORMATION
  Report Type: 
  Country: None (occurrence: None)
  Receive Date: 20080227
  Receipt Date: 20080221
  Transmission Date: 20080703
  Serious: Yes (Death, Hospitalization)
  Sender: FDA-Public Use
  Company Number: BR-AVENTIS-200810729EU

PATIENT
  Age: 52 Year
  Sex: Male
  Weight: 64 kg

DRUGS (5)
  1. LASIX [Suspect]
     Dosage: DOSE: 1 TABLET
     Route: 048
     Dates: start: 20080201, end: 20080205
  2. LASIX [Suspect]
     Dosage: DOSE: UNK
     Dates: start: 20080201, end: 20080201
  3. AMOXILLIN [Concomitant]
     Dosage: DOSE: 2 CAPS
     Route: 048
     Dates: start: 20080201
  4. CLARITHROMYCIN [Concomitant]
     Dosage: DOSE: 1 TABLET
     Route: 048
     Dates: start: 20080201
  5. NEUTROFER [Concomitant]
     Dosage: DOSE: 1 TAB
     Route: 048
     Dates: start: 20080201

REACTIONS (12)
  - ARRHYTHMIA [None]
  - ASTHENIA [None]
  - DEATH [None]
  - DRUG INEFFECTIVE [None]
  - DYSPNOEA [None]
  - FEAR [None]
  - MOUTH ULCERATION [None]
  - OEDEMA PERIPHERAL [None]
  - PALPITATIONS [None]
  - RENAL FAILURE [None]
  - RESPIRATORY DISORDER [None]
  - THROAT IRRITATION [None]
